FAERS Safety Report 21406591 (Version 1)
Quarter: 2022Q4

REPORT INFORMATION
  Report Type: Spontaneous
  Country: US (occurrence: US)
  Receive Date: 20221004
  Receipt Date: 20221004
  Transmission Date: 20230113
  Serious: No
  Sender: FDA-Public Use
  Company Number: US-APOTEX-2022AP003029

PATIENT
  Sex: Female

DRUGS (1)
  1. FLUTICASONE [Suspect]
     Active Substance: FLUTICASONE
     Indication: Product used for unknown indication
     Dosage: UNK
     Route: 065

REACTIONS (5)
  - Eye pruritus [Unknown]
  - Nasal pruritus [Unknown]
  - Product odour abnormal [Unknown]
  - Nervousness [Unknown]
  - Sneezing [Unknown]
